FAERS Safety Report 9346926 (Version 4)
Quarter: 2014Q1

REPORT INFORMATION
  Report Type: Spontaneous
  Country: GB (occurrence: GB)
  Receive Date: 20130613
  Receipt Date: 20140307
  Transmission Date: 20141002
  Serious: Yes (Death, Hospitalization, Other)
  Sender: FDA-Public Use
  Company Number: PHFR2013GB003394

PATIENT
  Age: 51 Year
  Sex: Female

DRUGS (6)
  1. CLOZARIL [Suspect]
     Indication: SCHIZOPHRENIA
     Dosage: 300 MG, QD
     Route: 048
     Dates: start: 20130520, end: 20130609
  2. RAMIPRIL [Concomitant]
     Dosage: 1.25 MG, QD
     Route: 048
  3. GLICLAZIDE [Concomitant]
     Dosage: 160 MG, QD
     Route: 048
  4. ASPIRIN [Concomitant]
     Dosage: 75 MG, QD
     Route: 048
  5. SODIUM VALPROATE [Concomitant]
     Dosage: 500 MG, QD
     Route: 048
  6. SITAGLIPTIN [Concomitant]
     Dosage: 100 MG, QD
     Route: 048

REACTIONS (11)
  - Respiratory distress [Fatal]
  - Pneumonia [Fatal]
  - Lower respiratory tract infection [Unknown]
  - Pulmonary embolism [Unknown]
  - Pyrexia [Unknown]
  - Tachycardia [Unknown]
  - Diabetes mellitus inadequate control [Unknown]
  - Urine ketone body present [Unknown]
  - Glucose tolerance impaired [Unknown]
  - Glycosylated haemoglobin increased [Unknown]
  - Salivary hypersecretion [Unknown]
